FAERS Safety Report 9670489 (Version 2)
Quarter: 2014Q1

REPORT INFORMATION
  Report Type: Spontaneous
  Country: US (occurrence: US)
  Receive Date: 20131106
  Receipt Date: 20140102
  Transmission Date: 20141002
  Serious: Yes (Other)
  Sender: FDA-Public Use
  Company Number: US-009507513-1311USA000659

PATIENT
  Sex: Male

DRUGS (1)
  1. JANUMET XR [Suspect]
     Dosage: 50/1000MG ONCE
     Route: 048

REACTIONS (2)
  - Colostomy [Not Recovered/Not Resolved]
  - Medication residue present [Not Recovered/Not Resolved]
